FAERS Safety Report 6831615-9 (Version None)
Quarter: 2010Q2

REPORT INFORMATION
  Report Type: 
  Country: None (occurrence: None)
  Receive Date: 20100520
  Receipt Date: 20090604
  Transmission Date: 20101027
  Serious: Yes (Other)
  Sender: FDA-Public Use
  Company Number: 2009223550

PATIENT
  Age: 63 Year
  Sex: Female
  Weight: 74 kg

DRUGS (6)
  1. PROVERA [Suspect]
     Indication: HORMONE REPLACEMENT THERAPY
     Dosage: 10 MG
     Dates: start: 19920101, end: 20010101
  2. PREMARIN [Suspect]
     Indication: HORMONE REPLACEMENT THERAPY
     Dosage: 0.9 MG ; 0.625 MG ; 0.3 MG
     Dates: start: 19920301, end: 19991201
  3. PREMARIN [Suspect]
     Indication: HORMONE REPLACEMENT THERAPY
     Dosage: 0.9 MG ; 0.625 MG ; 0.3 MG
     Dates: start: 19991201, end: 20040501
  4. PREMARIN [Suspect]
     Indication: HORMONE REPLACEMENT THERAPY
     Dosage: 0.9 MG ; 0.625 MG ; 0.3 MG
     Dates: start: 20040501, end: 20040601
  5. SYNTHROID [Concomitant]
  6. PROPRANOLOL [Concomitant]

REACTIONS (1)
  - BREAST CANCER FEMALE [None]
